FAERS Safety Report 20569384 (Version 1)
Quarter: 2022Q1

REPORT INFORMATION
  Report Type: Report from Study
  Country: DE (occurrence: DE)
  Receive Date: 20220308
  Receipt Date: 20220308
  Transmission Date: 20220423
  Serious: Yes (Hospitalization)
  Sender: FDA-Public Use
  Company Number: DE-TEVA-2022-DE-2014382

PATIENT
  Sex: Male

DRUGS (10)
  1. CELECOXIB [Suspect]
     Active Substance: CELECOXIB
     Indication: Spondylitis
     Dosage: QW
     Route: 065
     Dates: start: 20160323
  2. HYRIMOZ [Suspect]
     Active Substance: ADALIMUMAB-ADAZ
     Indication: Spondylitis
     Dosage: BIWEEKLY
     Route: 065
     Dates: start: 20210204, end: 20211005
  3. TORSEMIDE [Concomitant]
     Active Substance: TORSEMIDE
  4. BISOPROLOL [Concomitant]
     Active Substance: BISOPROLOL
  5. VALPROIC ACID [Concomitant]
     Active Substance: VALPROIC ACID
  6. DULOXETINE [Concomitant]
     Active Substance: DULOXETINE
  7. FERRO-SANOL DUODENAL [Concomitant]
     Active Substance: FERROUS GLYCINE SULFATE
  8. GABAPENTIN [Concomitant]
     Active Substance: GABAPENTIN
  9. METAMIZOLE [Concomitant]
     Active Substance: METAMIZOLE
  10. ALLOPURINOL [Concomitant]
     Active Substance: ALLOPURINOL

REACTIONS (4)
  - Metastases to liver [Not Recovered/Not Resolved]
  - Colon cancer [Not Recovered/Not Resolved]
  - Dizziness [Not Recovered/Not Resolved]
  - Dyspnoea exertional [Not Recovered/Not Resolved]

NARRATIVE: CASE EVENT DATE: 20210901
